FAERS Safety Report 6305902-7 (Version None)
Quarter: 2009Q3

REPORT INFORMATION
  Report Type: 
  Country: None (occurrence: None)
  Receive Date: 20090810
  Receipt Date: 20090810
  Transmission Date: 20100115
  Serious: Yes (Hospitalization)
  Sender: FDA-Public Use
  Company Number: None

PATIENT
  Sex: Female
  Weight: 50 kg

DRUGS (2)
  1. XELODA [Suspect]
     Dosage: 42350 MG
  2. ELOXATIN [Suspect]
     Dosage: 283.8 MG

REACTIONS (1)
  - DIARRHOEA [None]
